FAERS Safety Report 25555149 (Version 1)
Quarter: 2025Q3

REPORT INFORMATION
  Report Type: Spontaneous
  Country: CN (occurrence: CN)
  Receive Date: 20250715
  Receipt Date: 20250715
  Transmission Date: 20251021
  Serious: Yes (Other)
  Sender: NOVARTIS
  Company Number: CN-002147023-NVSC2025CN110533

PATIENT

DRUGS (4)
  1. OCTREOTIDE [Suspect]
     Active Substance: OCTREOTIDE
     Indication: Congenital hyperinsulinaemic hypoglycaemia
     Dosage: 5 ?G/KG, QD (DIVIDED INTO THREE EQUAL INJECTIONS ADMINISTERED AT 8 HOUR INTERVALS FOR 2-3 DAYS.)
     Route: 058
  2. OCTREOTIDE [Suspect]
     Active Substance: OCTREOTIDE
     Route: 058
  3. OCTREOTIDE [Suspect]
     Active Substance: OCTREOTIDE
  4. DIAZOXIDE [Concomitant]
     Active Substance: DIAZOXIDE
     Indication: Congenital hyperinsulinaemic hypoglycaemia
     Route: 065

REACTIONS (3)
  - Blood bilirubin increased [Recovered/Resolved]
  - Bilirubin conjugated increased [Recovered/Resolved]
  - Off label use [Unknown]
